FAERS Safety Report 8473413-9 (Version None)
Quarter: 2012Q2

REPORT INFORMATION
  Report Type: 
  Country: None (occurrence: None)
  Receive Date: 20120628
  Receipt Date: 20120618
  Transmission Date: 20120825
  Serious: No
  Sender: FDA-Public Use
  Company Number: US-BIOGENIDEC-2012BI022235

PATIENT
  Age: 30 Year
  Sex: Female

DRUGS (1)
  1. AVONEX [Suspect]
     Indication: MULTIPLE SCLEROSIS
     Route: 030
     Dates: start: 20120618

REACTIONS (5)
  - SENSATION OF PRESSURE [None]
  - PYREXIA [None]
  - DIZZINESS [None]
  - SENSATION OF HEAVINESS [None]
  - NASOPHARYNGITIS [None]
